FAERS Safety Report 13778754 (Version 8)
Quarter: 2020Q3

REPORT INFORMATION
  Report Type: Report from Study
  Country: ZA (occurrence: ZA)
  Receive Date: 20170721
  Receipt Date: 20200709
  Transmission Date: 20201102
  Serious: Yes (Other)
  Sender: FDA-Public Use
  Company Number: PHHY2016ZA126695

PATIENT
  Age: 19 Year
  Sex: Female
  Weight: 44.5 kg

DRUGS (6)
  1. EXJADE [Suspect]
     Active Substance: DEFERASIROX
     Dosage: 500 MG, QD
     Route: 048
  2. EXJADE [Suspect]
     Active Substance: DEFERASIROX
     Dosage: 750 MG
     Route: 048
  3. EXJADE [Suspect]
     Active Substance: DEFERASIROX
     Indication: THALASSAEMIA
     Dosage: 1500 MG, QD (1500 UG/LITER)
     Route: 048
     Dates: start: 20170217
  4. EXJADE [Suspect]
     Active Substance: DEFERASIROX
     Dosage: 1000 MG
     Route: 048
  5. DESFERAL [Suspect]
     Active Substance: DEFEROXAMINE MESYLATE
     Indication: THALASSAEMIA
     Dosage: TIATRATION DOSE
     Route: 065
     Dates: start: 1999
  6. DESFERAL [Suspect]
     Active Substance: DEFEROXAMINE MESYLATE
     Dosage: 1000 MG (PATIENT USING 2 VIALS OF DESFERAL X4 TIMES A WEEK VIA SYRINGE PUMP)
     Route: 065
     Dates: start: 20200513

REACTIONS (24)
  - Scratch [Recovered/Resolved]
  - Urinary tract infection [Recovering/Resolving]
  - Abdominal pain upper [Unknown]
  - Oral mucosal exfoliation [Unknown]
  - Immunodeficiency [Unknown]
  - Muscle spasms [Unknown]
  - Product use issue [Unknown]
  - Asthenia [Unknown]
  - Peripheral swelling [Recovered/Resolved]
  - Bone pain [Unknown]
  - Tongue blistering [Recovered/Resolved]
  - Influenza [Unknown]
  - Haemoglobin decreased [Recovering/Resolving]
  - Serum ferritin increased [Recovering/Resolving]
  - Diarrhoea [Unknown]
  - Wound infection [Recovered/Resolved]
  - Injection site abscess [Unknown]
  - Weight decreased [Recovering/Resolving]
  - Glossodynia [Not Recovered/Not Resolved]
  - Gastric disorder [Unknown]
  - Illness [Recovering/Resolving]
  - Speech disorder [Recovering/Resolving]
  - Drug level increased [Unknown]
  - Weight increased [Unknown]

NARRATIVE: CASE EVENT DATE: 20170302
